FAERS Safety Report 6142219-8 (Version None)
Quarter: 2009Q2

REPORT INFORMATION
  Report Type: 
  Country: None (occurrence: None)
  Receive Date: 20090403
  Receipt Date: 20071102
  Transmission Date: 20091009
  Serious: Yes (Death, Hospitalization, Other)
  Sender: FDA-Public Use
  Company Number: US-ASTRAZENECA-2007UW09511

PATIENT
  Age: 10708 Day
  Sex: Female

DRUGS (42)
  1. SEROQUEL [Suspect]
     Indication: BIPOLAR DISORDER
     Route: 048
     Dates: start: 20021211, end: 20050823
  2. SEROQUEL [Suspect]
     Indication: SCHIZOPHRENIA
     Route: 048
     Dates: start: 20021211, end: 20050823
  3. SEROQUEL [Suspect]
     Dosage: 25-200 MG
     Route: 048
     Dates: start: 20021211
  4. SEROQUEL [Suspect]
     Dosage: 25-200 MG
     Route: 048
     Dates: start: 20021211
  5. RISPERDAL [Concomitant]
     Dates: start: 20020911, end: 20040123
  6. CLONAZEPAM [Concomitant]
  7. LORTAB [Concomitant]
  8. LEXAPRO [Concomitant]
  9. LOTREL [Concomitant]
  10. REMERON [Concomitant]
  11. VISTARIL [Concomitant]
  12. XANAX [Concomitant]
  13. SKELAXIN [Concomitant]
  14. RANITIDINE [Concomitant]
  15. LORATADINE [Concomitant]
  16. TIZANIDINE HCL [Concomitant]
  17. CYANOCOBALAMIN [Concomitant]
  18. CYCLOBENZAPRINE [Concomitant]
  19. KLOR-CON [Concomitant]
  20. OMNICEF [Concomitant]
  21. IMITREX [Concomitant]
  22. ZYRTEC [Concomitant]
  23. WELLBUTRIN [Concomitant]
  24. LEVAGUIN [Concomitant]
  25. METAGLIP [Concomitant]
  26. AVANDIA [Concomitant]
  27. BIAXIN [Concomitant]
  28. RHINOCRIT [Concomitant]
  29. NITROFURANTOIN [Concomitant]
  30. BEXTRA [Concomitant]
  31. NASONEX [Concomitant]
  32. ZITHROMAX [Concomitant]
  33. TOPROL-XL [Concomitant]
  34. MEPROZINE [Concomitant]
  35. FRAGMIN [Concomitant]
  36. EFFEXOR [Concomitant]
  37. VIOXX [Concomitant]
  38. TRAMADOL [Concomitant]
  39. SILVER SULFADIAZINE [Concomitant]
  40. METRONIDAZOLE [Concomitant]
  41. CIPROFLOXACIN [Concomitant]
  42. PHENYLTOLOXAMINE [Concomitant]

REACTIONS (11)
  - ANXIETY DISORDER [None]
  - DEPRESSION [None]
  - DIABETIC KETOACIDOSIS [None]
  - GASTROENTERITIS VIRAL [None]
  - INSOMNIA [None]
  - MALNUTRITION [None]
  - MENINGITIS BACTERIAL [None]
  - OTITIS MEDIA [None]
  - PANCYTOPENIA [None]
  - PANIC DISORDER [None]
  - TYPE 2 DIABETES MELLITUS [None]
